FAERS Safety Report 13596654 (Version 1)
Quarter: 2017Q2

REPORT INFORMATION
  Report Type: Spontaneous
  Country: US (occurrence: US)
  Receive Date: 20170531
  Receipt Date: 20170531
  Transmission Date: 20170830
  Serious: No
  Sender: FDA-Public Use
  Company Number: PHEH2017US016190

PATIENT
  Age: 17 Year
  Sex: Male

DRUGS (1)
  1. PROMACTA [Suspect]
     Active Substance: ELTROMBOPAG OLAMINE
     Indication: EVANS SYNDROME
     Dosage: 50 MG, QD
     Route: 048
     Dates: start: 20141009

REACTIONS (5)
  - General physical condition abnormal [Unknown]
  - Platelet count increased [Unknown]
  - Product use in unapproved indication [Unknown]
  - Infection [Unknown]
  - Fatigue [Unknown]

NARRATIVE: CASE EVENT DATE: 20170517
